FAERS Safety Report 10594150 (Version 1)
Quarter: 2014Q4

REPORT INFORMATION
  Report Type: Spontaneous
  Country: DE (occurrence: DE)
  Receive Date: 20141119
  Receipt Date: 20141119
  Transmission Date: 20150529
  Serious: Yes (Congenital Anomaly)
  Sender: FDA-Public Use
  Company Number: DE-DSJP-DSE-2014-128660

PATIENT

DRUGS (7)
  1. FRAGMIN                            /01708302/ [Concomitant]
     Indication: FOETAL EXPOSURE DURING PREGNANCY
     Dosage: 5000 IU, QD
     Route: 064
     Dates: start: 20090225, end: 20090525
  2. OLMETEC [Suspect]
     Active Substance: OLMESARTAN MEDOXOMIL
     Indication: FOETAL EXPOSURE DURING PREGNANCY
     Dosage: 5 MG, QD
     Route: 064
     Dates: start: 20080915, end: 20090225
  3. FRAGMIN [Suspect]
     Active Substance: DALTEPARIN SODIUM
  4. CELESTAN                           /00008501/ [Concomitant]
     Indication: FOETAL EXPOSURE DURING PREGNANCY
     Dosage: 12 MG, QD
     Route: 064
     Dates: start: 20090321, end: 20090322
  5. SIMVASTATIN. [Concomitant]
     Active Substance: SIMVASTATIN
     Indication: FOETAL EXPOSURE DURING PREGNANCY
     Dosage: 40 MG, QD
     Route: 064
     Dates: start: 20080915, end: 20090324
  6. METHYLDOPA. [Concomitant]
     Active Substance: METHYLDOPA
     Indication: FOETAL EXPOSURE DURING PREGNANCY
     Dosage: 250 MG, QD
     Route: 064
     Dates: start: 20090225, end: 20090525
  7. ASPIRIN. [Concomitant]
     Active Substance: ASPIRIN
     Indication: FOETAL EXPOSURE DURING PREGNANCY
     Dosage: 100 MG, QD
     Route: 064

REACTIONS (2)
  - Foetal exposure timing unspecified [Recovered/Resolved]
  - Ultrasound kidney abnormal [Not Recovered/Not Resolved]

NARRATIVE: CASE EVENT DATE: 2008
